FAERS Safety Report 23059554 (Version 1)
Quarter: 2023Q4

REPORT INFORMATION
  Report Type: Spontaneous
  Country: US (occurrence: US)
  Receive Date: 20231012
  Receipt Date: 20231012
  Transmission Date: 20240110
  Serious: Yes (Other)
  Sender: FDA-Public Use
  Company Number: US-MYLANLABS-2023M1106567

PATIENT
  Sex: Male

DRUGS (9)
  1. TEMOZOLOMIDE [Suspect]
     Active Substance: TEMOZOLOMIDE
     Indication: Prolactin-producing pituitary tumour
     Dosage: 75 MILLIGRAM/SQ. METER, QD
     Route: 065
  2. TEMOZOLOMIDE [Suspect]
     Active Substance: TEMOZOLOMIDE
     Dosage: UNK, QD, RECEIVED TREATMENT WITH 10 CYCLES OF TEMOZOLOMIDE 150-200 MG/M2 DAILY FOR 5 CONSECUTIVE DAY
     Route: 065
  3. TEMOZOLOMIDE [Suspect]
     Active Substance: TEMOZOLOMIDE
     Dosage: 75 MILLIGRAM/SQ. METER, QD
     Route: 065
  4. EVEROLIMUS [Suspect]
     Active Substance: EVEROLIMUS
     Indication: Prolactin-producing pituitary tumour
     Dosage: 10 MILLIGRAM, QD
     Route: 065
  5. EVEROLIMUS [Suspect]
     Active Substance: EVEROLIMUS
     Dosage: 10 MILLIGRAM, QD, RE-INITIATED
     Route: 065
  6. EVEROLIMUS [Suspect]
     Active Substance: EVEROLIMUS
     Dosage: 5 MILLIGRAM, QD, REDUCED DOSE
     Route: 065
  7. LAPATINIB [Suspect]
     Active Substance: LAPATINIB
     Indication: Prolactin-producing pituitary tumour
     Dosage: UNK
     Route: 065
  8. LAPATINIB [Suspect]
     Active Substance: LAPATINIB
     Dosage: UNK (DOSE REDUCED)
     Route: 065
  9. CABERGOLINE [Concomitant]
     Active Substance: CABERGOLINE
     Indication: Prolactin-producing pituitary tumour
     Dosage: 0.5 MILLIGRAM, 5 TIMES A WEEK (RECEIVED THROUGHOUT HIS TREATMENT COURSE)
     Route: 065

REACTIONS (3)
  - Myelodysplastic syndrome [Unknown]
  - Thrombocytopenia [Unknown]
  - Off label use [Unknown]
